FAERS Safety Report 21400116 (Version 1)
Quarter: 2022Q4

REPORT INFORMATION
  Report Type: Spontaneous
  Country: DE (occurrence: DE)
  Receive Date: 20221002
  Receipt Date: 20221002
  Transmission Date: 20230112
  Serious: Yes (Hospitalization)
  Sender: FDA-Public Use
  Company Number: DE-ADRED-07804-01

PATIENT
  Age: 93 Year
  Sex: Female
  Weight: 55 kg

DRUGS (10)
  1. PREDNISOLONE [Suspect]
     Active Substance: PREDNISOLONE
     Indication: Product used for unknown indication
     Dosage: 20 MILLIGRAM DAILY; 20 MG, 1-0-0-0
     Route: 065
  2. ALBUTEROL [Concomitant]
     Active Substance: ALBUTEROL
     Indication: Product used for unknown indication
     Dosage: 1-1-1-0
  3. METAMIZOLE [Concomitant]
     Active Substance: METAMIZOLE
     Indication: Product used for unknown indication
     Dosage: 500 MG, REQUIREMENT
  4. BUDESONIDE\FORMOTEROL [Concomitant]
     Active Substance: BUDESONIDE\FORMOTEROL
     Indication: Product used for unknown indication
     Dosage: 1-0-1-0
  5. RAMIPRIL [Concomitant]
     Active Substance: RAMIPRIL
     Indication: Product used for unknown indication
     Dosage: 10 MILLIGRAM DAILY; 5 MG, 1-0-1-0
  6. BISOPROLOL [Concomitant]
     Active Substance: BISOPROLOL
     Indication: Product used for unknown indication
     Dosage: 10 MILLIGRAM DAILY; 5 MG, 1-0-1-0
  7. PANTOPRAZOLE [Concomitant]
     Active Substance: PANTOPRAZOLE
     Indication: Product used for unknown indication
     Dosage: 40 MILLIGRAM DAILY; 40 MG, 1-0-0-0
  8. MELPERONE [Concomitant]
     Active Substance: MELPERONE
     Indication: Product used for unknown indication
     Dosage: .5 DOSAGE FORMS DAILY; 25 MG, 0-0-0.5-0
  9. FENOTEROL HYDROBROMIDE\IPRATROPIUM BROMIDE [Concomitant]
     Active Substance: FENOTEROL HYDROBROMIDE\IPRATROPIUM BROMIDE
     Indication: Product used for unknown indication
  10. LEVOTHYROXINE SODIUM [Concomitant]
     Active Substance: LEVOTHYROXINE SODIUM
     Indication: Product used for unknown indication
     Dosage: 100 MICROGRAM DAILY; 100 UG, 1-0-0-0

REACTIONS (6)
  - Pain [Unknown]
  - Abdominal pain upper [Unknown]
  - Systemic infection [Unknown]
  - Hyponatraemia [Unknown]
  - General physical health deterioration [Unknown]
  - Anaemia [Unknown]
